FAERS Safety Report 9860666 (Version 1)
Quarter: 2014Q1

REPORT INFORMATION
  Report Type: Spontaneous
  Country: US (occurrence: US)
  Receive Date: 20140202
  Receipt Date: 20140202
  Transmission Date: 20141002
  Serious: No
  Sender: FDA-Public Use
  Company Number: US-ALLERGAN-1300189US

PATIENT
  Age: 55 Year
  Sex: Female

DRUGS (3)
  1. BOTOX COSMETIC [Suspect]
     Indication: SKIN WRINKLING
     Dosage: UNK, SINGLE
     Route: 030
     Dates: start: 20121116, end: 20121116
  2. REFRESH OPTIVE [Suspect]
     Indication: DRY EYE
     Dosage: UNK
     Route: 047
  3. REFRESH OPTIVE [Suspect]
     Dosage: UNK
     Route: 047

REACTIONS (3)
  - Nasal congestion [Not Recovered/Not Resolved]
  - Diplopia [Recovered/Resolved]
  - Eyelid ptosis [Unknown]
